FAERS Safety Report 25795984 (Version 3)
Quarter: 2025Q4

REPORT INFORMATION
  Report Type: Spontaneous
  Country: EU (occurrence: EU)
  Receive Date: 20250912
  Receipt Date: 20251001
  Transmission Date: 20260117
  Serious: Yes (Hospitalization, Other)
  Sender: PFIZER
  Company Number: EU-PFIZER INC-PV202500109433

PATIENT
  Age: 35 Year
  Sex: Female
  Weight: 69 kg

DRUGS (4)
  1. LORLATINIB [Suspect]
     Active Substance: LORLATINIB
     Indication: Lung neoplasm malignant
     Dosage: 100 MG, 1X/DAY
     Route: 048
     Dates: start: 20250506, end: 20250711
  2. LORLATINIB [Suspect]
     Active Substance: LORLATINIB
     Indication: Metastases to central nervous system
  3. ACETAMINOPHEN [Concomitant]
     Active Substance: ACETAMINOPHEN
     Indication: Pain
     Dosage: 1 G, 3X/DAY
  4. GABAPENTIN [Concomitant]
     Active Substance: GABAPENTIN
     Indication: Neuralgia
     Dosage: 300 MG, 3X/DAY

REACTIONS (4)
  - Delirium [Recovered/Resolved]
  - Hallucination, auditory [Recovered/Resolved]
  - Lung neoplasm malignant [Recovered/Resolved]
  - Malignant neoplasm progression [Recovered/Resolved]

NARRATIVE: CASE EVENT DATE: 20250506
